FAERS Safety Report 6002088-3 (Version None)
Quarter: 2008Q4

REPORT INFORMATION
  Report Type: 
  Country: None (occurrence: None)
  Receive Date: 20081215
  Receipt Date: 20071126
  Transmission Date: 20090506
  Serious: No
  Sender: FDA-Public Use
  Company Number: US-AMGEN-KDL253995

PATIENT
  Sex: Female

DRUGS (4)
  1. ENBREL [Suspect]
     Indication: RHEUMATOID ARTHRITIS
     Route: 058
     Dates: start: 20071030
  2. METHOTREXATE [Concomitant]
     Route: 048
     Dates: start: 20020101
  3. HYDROXYCHLOROQUINE SULFATE [Concomitant]
     Route: 048
     Dates: start: 20000101
  4. SULFADIAZINE [Concomitant]
     Route: 048
     Dates: start: 20010101

REACTIONS (3)
  - NAUSEA [None]
  - PARAESTHESIA [None]
  - RHEUMATOID ARTHRITIS [None]
